FAERS Safety Report 7010464-5 (Version None)
Quarter: 2010Q3

REPORT INFORMATION
  Report Type: 
  Country: None (occurrence: None)
  Receive Date: 20100923
  Receipt Date: 20100917
  Transmission Date: 20110219
  Serious: Yes (Other)
  Sender: FDA-Public Use
  Company Number: PHHY2009DE46878

PATIENT
  Age: 70 Year
  Sex: Female

DRUGS (1)
  1. EXTAVIA [Suspect]
     Indication: MULTIPLE SCLEROSIS
     Dosage: 250 UG, QOD
     Route: 058
     Dates: start: 20090401, end: 20091001

REACTIONS (3)
  - HEPATIC CIRRHOSIS [None]
  - RENAL FAILURE [None]
  - RENAL FUNCTION TEST ABNORMAL [None]
